FAERS Safety Report 15768154 (Version 3)
Quarter: 2019Q4

REPORT INFORMATION
  Report Type: Report from Study
  Country: DK (occurrence: DK)
  Receive Date: 20181227
  Receipt Date: 20191011
  Transmission Date: 20200122
  Serious: Yes (Death, Life-Threatening, Hospitalization)
  Sender: FDA-Public Use
  Company Number: DK-TEVA-2018-DK-992658

PATIENT
  Age: 82 Year
  Sex: Female

DRUGS (2)
  1. VERAPAMIL [Suspect]
     Active Substance: VERAPAMIL HYDROCHLORIDE
     Indication: SUICIDAL IDEATION
     Dosage: FORMULATION: EXTENDED RELEASE
     Route: 048
  2. ESCITALOPRAM [Suspect]
     Active Substance: ESCITALOPRAM OXALATE
     Indication: SUICIDAL IDEATION
     Route: 065

REACTIONS (12)
  - Overdose [Fatal]
  - Toxicity to various agents [Fatal]
  - Atrial fibrillation [Fatal]
  - Somnolence [Unknown]
  - Anuria [Unknown]
  - Cardiotoxicity [Fatal]
  - Muscle spasms [Unknown]
  - Hypercapnia [Unknown]
  - Bundle branch block left [Fatal]
  - Muscle twitching [Unknown]
  - Completed suicide [Fatal]
  - Bradycardia [Fatal]
